FAERS Safety Report 5206933-0 (Version None)
Quarter: 2007Q1

REPORT INFORMATION
  Report Type: 
  Country: None (occurrence: None)
  Receive Date: 20070105
  Receipt Date: 20070105
  Transmission Date: 20070707
  Serious: Yes (Hospitalization)
  Sender: FDA-Public Use
  Company Number: None

PATIENT
  Age: 64 Year
  Sex: Female

DRUGS (2)
  1. CLONIDINE [Suspect]
     Dosage: 0.1 MG TID
  2. DIOVAN [Suspect]
     Indication: HYPERTENSION
     Dosage: 80MG PO DAILY
     Route: 048

REACTIONS (3)
  - HYPOTENSION [None]
  - HYPOXIA [None]
  - LOSS OF CONSCIOUSNESS [None]
